FAERS Safety Report 7402235-2 (Version None)
Quarter: 2011Q1

REPORT INFORMATION
  Report Type: 
  Country: None (occurrence: None)
  Receive Date: 20110331
  Receipt Date: 20110325
  Transmission Date: 20110831
  Serious: Yes (Life-Threatening, Hospitalization)
  Sender: FDA-Public Use
  Company Number: 2011SP008741

PATIENT
  Age: 76 Year
  Sex: Male

DRUGS (12)
  1. IRINOTECAN HYDROCHLORIDE [Suspect]
     Indication: COLON CANCER STAGE IV
     Dosage: 620 MG;IV
     Route: 042
     Dates: start: 20110111, end: 20110111
  2. ISOSORBIDE MONONITRATE [Concomitant]
  3. DEXAMETHASONE [Suspect]
     Indication: PROPHYLAXIS OF NAUSEA AND VOMITING
     Dosage: 8 MG;PO
     Route: 048
     Dates: start: 20110111, end: 20110113
  4. METFORMIN [Concomitant]
  5. FERROUS SULFATE TAB [Concomitant]
  6. ASPIRIN [Concomitant]
  7. AMLODIPINE [Concomitant]
  8. BISOPROLOL FUMARATE [Concomitant]
  9. IRBESARTAN [Concomitant]
  10. PRAVASTATIN SODIUM [Concomitant]
  11. ONDANSETRON HYDROCHLORIDE [Suspect]
     Indication: PROPHYLAXIS OF NAUSEA AND VOMITING
     Dosage: 8 MG;IV
     Route: 042
     Dates: start: 20110111, end: 20110111
  12. GLICAZIDE [Concomitant]

REACTIONS (3)
  - VOMITING [None]
  - DIARRHOEA [None]
  - ACUTE MYOCARDIAL INFARCTION [None]
